FAERS Safety Report 6385972-0 (Version None)
Quarter: 2009Q4

REPORT INFORMATION
  Report Type: 
  Country: None (occurrence: None)
  Receive Date: 20091002
  Receipt Date: 20090709
  Transmission Date: 20100525
  Serious: No
  Sender: FDA-Public Use
  Company Number: US-ASTRAZENECA-2009UW05305

PATIENT
  Age: 723 Month
  Sex: Female
  Weight: 89.4 kg

DRUGS (4)
  1. ARIMIDEX [Suspect]
     Route: 048
     Dates: start: 20081211
  2. PENTOXIFYLLINE [Concomitant]
  3. PANTOPRAZOLE SODIUM [Concomitant]
  4. DIOVAN HCT [Concomitant]

REACTIONS (3)
  - HYPOAESTHESIA [None]
  - MUSCULAR WEAKNESS [None]
  - OEDEMA PERIPHERAL [None]
